FAERS Safety Report 9389032 (Version 1)
Quarter: 2013Q3

REPORT INFORMATION
  Report Type: Report from Study
  Country: US (occurrence: US)
  Receive Date: 20130708
  Receipt Date: 20130708
  Transmission Date: 20140515
  Serious: Yes (Hospitalization, Other)
  Sender: FDA-Public Use
  Company Number: US-ABBOTT-13P-163-1113146-00

PATIENT
  Age: 60 Year
  Sex: Male

DRUGS (16)
  1. HUMIRA [Suspect]
     Indication: PSORIASIS
     Dates: end: 201203
  2. HUMIRA [Suspect]
     Dates: start: 20130401
  3. B6 [Concomitant]
     Indication: PRODUCT USED FOR UNKNOWN INDICATION
  4. OMEPRAZOLE [Concomitant]
     Indication: GASTROOESOPHAGEAL REFLUX DISEASE
  5. SINGULAIR [Concomitant]
     Indication: HYPERSENSITIVITY
  6. SINGULAIR [Concomitant]
     Indication: ASTHMA
  7. NEXIUM [Concomitant]
     Indication: GASTROOESOPHAGEAL REFLUX DISEASE
  8. AMLODIPINE [Concomitant]
     Indication: HYPERTENSION
  9. BENAZEPRIL [Concomitant]
     Indication: HYPERTENSION
  10. METOPROLOL [Concomitant]
     Indication: HYPERTENSION
  11. CRESTOR [Concomitant]
     Indication: BLOOD CHOLESTEROL INCREASED
  12. METFORMIN [Concomitant]
     Indication: DIABETES MELLITUS
  13. FENOFIBRATE [Concomitant]
     Indication: BLOOD TRIGLYCERIDES
  14. LANTUS [Concomitant]
     Indication: DIABETES MELLITUS
  15. COQ 10 [Concomitant]
     Indication: PRODUCT USED FOR UNKNOWN INDICATION
  16. RED YEAST RICE [Concomitant]
     Indication: BLOOD TRIGLYCERIDES

REACTIONS (14)
  - Haemorrhage [Unknown]
  - Toxic shock syndrome [Unknown]
  - Renal cancer [Unknown]
  - Mood altered [Unknown]
  - Personality change [Unknown]
  - Mental status changes postoperative [Unknown]
  - Confusion postoperative [Unknown]
  - Post procedural haemorrhage [Unknown]
  - Blood pressure immeasurable [Unknown]
  - Body temperature decreased [Unknown]
  - Injection site pain [Unknown]
  - Injection site injury [Unknown]
  - Wrong technique in drug usage process [Unknown]
  - Injection site extravasation [Unknown]
